FAERS Safety Report 10081786 (Version 2)
Quarter: 2014Q2

REPORT INFORMATION
  Report Type: Report from Study
  Country: US (occurrence: US)
  Receive Date: 20140416
  Receipt Date: 20140416
  Transmission Date: 20141212
  Serious: Yes (Hospitalization)
  Sender: FDA-Public Use
  Company Number: US-ACTELION-A-NJ2014-97210

PATIENT
  Age: 81 Year
  Sex: Male

DRUGS (3)
  1. MACITENTAN [Suspect]
     Indication: PULMONARY ARTERIAL HYPERTENSION
     Dosage: 10 MG, UNK
     Route: 048
  2. MACITENTAN [Suspect]
     Dosage: UNK
     Route: 048
  3. REMODULIN [Concomitant]

REACTIONS (2)
  - Pulmonary fibrosis [Unknown]
  - Peripheral swelling [Unknown]
